FAERS Safety Report 5076069-0 (Version None)
Quarter: 2006Q3

REPORT INFORMATION
  Report Type: 
  Country: None (occurrence: None)
  Receive Date: 20060807
  Receipt Date: 20060728
  Transmission Date: 20061208
  Serious: Yes (Hospitalization, Other)
  Sender: FDA-Public Use
  Company Number: 2006066833

PATIENT
  Age: 21 Year
  Sex: Female
  Weight: 40 kg

DRUGS (12)
  1. ZOLOFT [Suspect]
     Indication: DEPRESSION
     Dosage: 25 MG (25 MG, 1 IN 1 D), ORAL
     Route: 048
     Dates: start: 20060519
  2. ZOLOFT [Suspect]
     Indication: ILL-DEFINED DISORDER
     Dosage: 25 MG (25 MG, 1 IN 1 D), ORAL
     Route: 048
     Dates: start: 20060519
  3. DAPSONE [Suspect]
     Indication: DRUG USE FOR UNKNOWN INDICATION
     Dates: start: 20030101
  4. VINCRISTINE [Suspect]
     Indication: CHEMOTHERAPY
  5. ALL OTHER THERAPEUTIC PRODUCTS (ALL  OTHER THERAPEUTIC PRODUCTS) [Suspect]
     Indication: DRUG USE FOR UNKNOWN INDICATION
  6. LEVOTHYROXINE SODIUM [Concomitant]
  7. MORPHINE [Concomitant]
  8. ONDANSETRON [Concomitant]
  9. PROMETHAZINE [Concomitant]
  10. IBUPROFEN [Concomitant]
  11. SYNTHROID [Concomitant]
  12. ZOFRAN [Concomitant]

REACTIONS (59)
  - ABASIA [None]
  - ACTIVATED PARTIAL THROMBOPLASTIN TIME SHORTENED [None]
  - ALANINE AMINOTRANSFERASE INCREASED [None]
  - ANOREXIA [None]
  - ASPARTATE AMINOTRANSFERASE INCREASED [None]
  - ASTHENIA [None]
  - ASTROCYTOMA, LOW GRADE [None]
  - BACK PAIN [None]
  - BAND NEUTROPHIL COUNT INCREASED [None]
  - BLOOD GLUCOSE INCREASED [None]
  - BLOOD UREA INCREASED [None]
  - BLOOD URINE PRESENT [None]
  - BRAIN MASS [None]
  - BRAIN OEDEMA [None]
  - CONFUSIONAL STATE [None]
  - CSF GLUCOSE INCREASED [None]
  - CSF PROTEIN INCREASED [None]
  - CSF TEST ABNORMAL [None]
  - DEPRESSION [None]
  - DRUG TOXICITY [None]
  - EYE MOVEMENT DISORDER [None]
  - FATIGUE [None]
  - FEELING ABNORMAL [None]
  - FLUSHING [None]
  - GAIT DISTURBANCE [None]
  - HAEMATOCRIT DECREASED [None]
  - HAEMOGLOBIN DECREASED [None]
  - HAEMORRHAGE [None]
  - HEADACHE [None]
  - HEART RATE INCREASED [None]
  - HYDROCEPHALUS [None]
  - HYPOTHYROIDISM [None]
  - LETHARGY [None]
  - MALIGNANT NEOPLASM PROGRESSION [None]
  - MENTAL STATUS CHANGES [None]
  - METASTASES TO SPINE [None]
  - METASTASIS [None]
  - METHAEMOGLOBINAEMIA [None]
  - MUCOEPIDERMOID CARCINOMA [None]
  - MUCOSAL INFLAMMATION [None]
  - NAUSEA [None]
  - NECK PAIN [None]
  - NEUROLEPTIC MALIGNANT SYNDROME [None]
  - NEUROTOXICITY [None]
  - OEDEMA PERIPHERAL [None]
  - OPERATIVE HAEMORRHAGE [None]
  - PLATELET COUNT INCREASED [None]
  - PYREXIA [None]
  - RESPIRATORY RATE INCREASED [None]
  - SEROTONIN SYNDROME [None]
  - SHUNT MALFUNCTION [None]
  - SIALOADENITIS [None]
  - SKIN EXFOLIATION [None]
  - SOMNOLENCE [None]
  - SPEECH DISORDER [None]
  - SUBMANDIBULAR MASS [None]
  - TREMOR [None]
  - VOMITING [None]
  - WHITE BLOOD CELL COUNT INCREASED [None]
